FAERS Safety Report 25698966 (Version 1)
Quarter: 2025Q3

REPORT INFORMATION
  Report Type: Spontaneous
  Country: US (occurrence: None)
  Receive Date: 20250818
  Receipt Date: 20250818
  Transmission Date: 20251021
  Serious: No
  Sender: FDA-CTU
  Company Number: None

PATIENT
  Age: 72 Year
  Sex: Female
  Weight: 49.5 kg

DRUGS (10)
  1. GABAPENTIN [Suspect]
     Active Substance: GABAPENTIN
     Indication: Piriformis syndrome
     Dosage: 2 CAPSULE(S) AT BEDTIME ORAL ?
     Route: 048
     Dates: start: 20250624, end: 20250718
  2. SIMVASTATIN [Concomitant]
     Active Substance: SIMVASTATIN
  3. PROLIA [Concomitant]
     Active Substance: DENOSUMAB
  4. IRON\VITAMINS [Concomitant]
     Active Substance: IRON\VITAMINS
  5. FLAXSEED [Concomitant]
     Active Substance: FLAX SEED
  6. CALCIUM [Concomitant]
     Active Substance: CALCIUM
  7. MAGNESIUM [Concomitant]
     Active Substance: MAGNESIUM
  8. MELATONIN [Concomitant]
     Active Substance: MELATONIN
  9. ACETAMINOPHEN [Concomitant]
     Active Substance: ACETAMINOPHEN
  10. NAPROXEN [Concomitant]
     Active Substance: NAPROXEN

REACTIONS (3)
  - Pruritus [None]
  - Erythema [None]
  - Rash papular [None]

NARRATIVE: CASE EVENT DATE: 20250712
